FAERS Safety Report 25985550 (Version 1)
Quarter: 2025Q4

REPORT INFORMATION
  Report Type: Spontaneous
  Country: EU (occurrence: EU)
  Receive Date: 20251101
  Receipt Date: 20251101
  Transmission Date: 20260118
  Serious: Yes (Hospitalization)
  Sender: AUROBINDO
  Company Number: EU-AFSSAPS-NT2025001046

PATIENT
  Age: 43 Year
  Sex: Male
  Weight: 108 kg

DRUGS (3)
  1. DOXYCYCLINE [Interacting]
     Active Substance: DOXYCYCLINE
     Indication: Endocarditis
     Dosage: 200 MILLIGRAM, ONCE A DAY
     Route: 048
     Dates: start: 20250403
  2. WARFARIN SODIUM [Interacting]
     Active Substance: WARFARIN SODIUM
     Indication: Cardiac valve prosthesis user
     Dosage: 3 MILLIGRAM, ONCE A DAY
     Route: 048
     Dates: start: 20250413, end: 20250416
  3. CEFAZOLIN SODIUM [Interacting]
     Active Substance: CEFAZOLIN SODIUM
     Indication: Endocarditis
     Dosage: 9 GRAM, ONCE A DAY
     Route: 042
     Dates: start: 20250403, end: 20250417

REACTIONS (2)
  - International normalised ratio increased [Recovered/Resolved]
  - Overdose [Recovered/Resolved]

NARRATIVE: CASE EVENT DATE: 20250416
